FAERS Safety Report 6095812-5 (Version None)
Quarter: 2009Q1

REPORT INFORMATION
  Report Type: 
  Country: None (occurrence: None)
  Receive Date: 20090227
  Receipt Date: 20080613
  Transmission Date: 20090719
  Serious: Yes (Other)
  Sender: FDA-Public Use
  Company Number: A0733722A

PATIENT
  Sex: Male

DRUGS (1)
  1. LAMICTAL [Suspect]
     Indication: DRUG USE FOR UNKNOWN INDICATION
     Route: 048

REACTIONS (6)
  - DYSKINESIA [None]
  - METAMORPHOPSIA [None]
  - MYODESOPSIA [None]
  - RESTLESS LEGS SYNDROME [None]
  - TREMOR [None]
  - VISUAL IMPAIRMENT [None]
